FAERS Safety Report 7270123-0 (Version None)
Quarter: 2011Q1

REPORT INFORMATION
  Report Type: 
  Country: None (occurrence: None)
  Receive Date: 20110202
  Receipt Date: 20110201
  Transmission Date: 20110831
  Serious: Yes (Other)
  Sender: FDA-Public Use
  Company Number: GB-ROCHE-756736

PATIENT
  Age: 19 Year
  Sex: Male

DRUGS (10)
  1. BISOPROLOL FUMARATE [Concomitant]
  2. WARFARIN SODIUM [Concomitant]
  3. FUROSEMIDE [Concomitant]
  4. SPIRONOLACTONE [Concomitant]
  5. TAMIFLU [Suspect]
     Indication: VIRAL INFECTION
     Dosage: DRUG WITHDRAWN
     Route: 048
     Dates: start: 20110120, end: 20110124
  6. LANSOPRAZOLE [Concomitant]
  7. LISINOPRIL [Concomitant]
  8. PARACETAMOL [Concomitant]
  9. AMOXICILLIN [Concomitant]
  10. FONDAPARINUX SODIUM [Concomitant]

REACTIONS (1)
  - CONVULSION [None]
